FAERS Safety Report 8417978-1 (Version None)
Quarter: 2012Q2

REPORT INFORMATION
  Report Type: 
  Country: None (occurrence: None)
  Receive Date: 20120607
  Receipt Date: 20120528
  Transmission Date: 20120825
  Serious: Yes (Other)
  Sender: FDA-Public Use
  Company Number: CA-JNJFOC-20120519812

PATIENT
  Sex: Female

DRUGS (7)
  1. REMICADE [Suspect]
     Route: 042
     Dates: start: 20120329
  2. CLINDAMYCIN [Suspect]
     Indication: SWELLING
     Route: 065
  3. REMICADE [Suspect]
     Indication: CROHN'S DISEASE
     Route: 042
  4. DIANE 35 [Concomitant]
     Route: 065
  5. IMURAN [Concomitant]
     Route: 065
  6. CLINDAMYCIN [Suspect]
     Indication: ORAL PAIN
     Route: 065
  7. ZOLOFT [Concomitant]
     Route: 065

REACTIONS (2)
  - STAPHYLOCOCCAL INFECTION [None]
  - SWOLLEN TONGUE [None]
